FAERS Safety Report 21790056 (Version 2)
Quarter: 2023Q1

REPORT INFORMATION
  Report Type: Report from Study
  Country: US (occurrence: US)
  Receive Date: 20221228
  Receipt Date: 20230324
  Transmission Date: 20230418
  Serious: Yes (Other)
  Sender: FDA-Public Use
  Company Number: US-ALNYLAM PHARMACEUTICALS, INC.-ALN-2022-004729

PATIENT

DRUGS (3)
  1. ONPATTRO [Suspect]
     Active Substance: PATISIRAN SODIUM
     Indication: Hereditary neuropathic amyloidosis
     Dosage: UNK
     Route: 065
     Dates: start: 20201020
  2. ONPATTRO [Suspect]
     Active Substance: PATISIRAN SODIUM
     Dosage: UNK
     Route: 065
     Dates: start: 20221213
  3. ONPATTRO [Suspect]
     Active Substance: PATISIRAN SODIUM
     Dosage: UNK
     Route: 065
     Dates: start: 20230314

REACTIONS (6)
  - Intestinal obstruction [Not Recovered/Not Resolved]
  - Gastrointestinal surgery [Unknown]
  - Weight decreased [Unknown]
  - Dyspepsia [Unknown]
  - Malaise [Unknown]
  - Euphoric mood [Unknown]

NARRATIVE: CASE EVENT DATE: 20220101
